FAERS Safety Report 9539201 (Version 1)
Quarter: 2013Q2

REPORT INFORMATION
  Report Type: Spontaneous
  Country: US (occurrence: None)
  Receive Date: 20130507
  Receipt Date: 20130507
  Transmission Date: 20140414
  Serious: No
  Sender: FDA-Public Use
  Company Number: PHEH2013US003308

PATIENT
  Age: 57 Year
  Sex: Female

DRUGS (2)
  1. AFINITOR (RAD) UNKNOWN [Suspect]
     Indication: TUBEROUS SCLEROSIS
     Route: 048
     Dates: start: 20130123, end: 20130204
  2. MULTIPLE VITAMINS [Concomitant]

REACTIONS (2)
  - Influenza [None]
  - Stomatitis [None]
